FAERS Safety Report 6078811-9 (Version None)
Quarter: 2009Q1

REPORT INFORMATION
  Report Type: 
  Country: None (occurrence: None)
  Receive Date: 20090216
  Receipt Date: 20090114
  Transmission Date: 20090719
  Serious: No
  Sender: FDA-Public Use
  Company Number: US-BAYER-200910150BCC

PATIENT
  Age: 55 Year
  Sex: Female
  Weight: 79 kg

DRUGS (6)
  1. ALEVE (CAPLET) [Suspect]
     Indication: PAIN IN EXTREMITY
     Dosage: TOTAL DAILY DOSE: 440 MG  UNIT DOSE: 220 MG
     Route: 048
     Dates: start: 20090113
  2. ALEVE (CAPLET) [Suspect]
     Route: 048
  3. BARLEANS ESSENTIAL WOMEN [Concomitant]
  4. CENTRUM [Concomitant]
  5. SPRING VALLEY VITAMIN D [Concomitant]
  6. BAUSCH AND LOMB OCUVITE [Concomitant]

REACTIONS (2)
  - ABDOMINAL DISCOMFORT [None]
  - EPISTAXIS [None]
